FAERS Safety Report 9240442 (Version 1)
Quarter: 2013Q1

REPORT INFORMATION
  Report Type: Spontaneous
  Country: US (occurrence: None)
  Receive Date: 20121107
  Receipt Date: 20121107
  Transmission Date: 20140127
  Serious: No
  Sender: FDA-Public Use
  Company Number: 2012HGS-003856

PATIENT
  Age: 51 Year
  Sex: Female
  Weight: 52.62 kg

DRUGS (7)
  1. BENLYSTA [Suspect]
     Indication: SYSTEMIC LUPUS ERYTHEMATOSUS
     Dosage: 1 IN 28 D, INTRAVENOUS DRIP
     Route: 041
     Dates: start: 20120522, end: 20120523
  2. PREDNISONE (PREDNISONE) (PREDNISONE) [Concomitant]
  3. PLAQUENIL (HYDROXYCHLOROQUINE PHOSPHATE) (HYDROXYCHLOROQUINE PHOSPHATE) [Concomitant]
  4. VITAMIN D (ERGOCALCIFEROL) (ERGOCALCIFEROL) [Concomitant]
  5. FIORICET (FIORICET WITH CODEINE) (CODEINE PHOSPHATE, CAFFEINE, BUTALBITAL, PARACETAMOL) [Concomitant]
  6. VITAMIN C (ASCORBIC ACID) (ASCORBIC ACID) [Concomitant]
  7. PROTONIX (PANTOPRAZOLE SODIUM SESQUIHYDRATE) (PANTOPRAZOLE SODIUM SESQUIHYDRATE) [Concomitant]

REACTIONS (2)
  - Renal cyst [None]
  - Nasopharyngitis [None]
